FAERS Safety Report 5365070-5 (Version None)
Quarter: 2007Q2

REPORT INFORMATION
  Report Type: 
  Country: None (occurrence: None)
  Receive Date: 20070621
  Receipt Date: 20070618
  Transmission Date: 20071010
  Serious: Yes (Hospitalization)
  Sender: FDA-Public Use
  Company Number: FRWYE876719JUN07

PATIENT
  Sex: Female

DRUGS (3)
  1. ADVIL [Suspect]
     Route: 061
     Dates: start: 20070430, end: 20070430
  2. NASALIDE [Suspect]
     Dosage: 1 DOSE IF NECESSARY; LAST INTAKE ON 30-APR-2007
     Route: 055
     Dates: end: 20070430
  3. LAMALINE [Suspect]
     Dosage: 1 DOSE IF NECESSARY
     Route: 054
     Dates: end: 20070430

REACTIONS (6)
  - CONDITION AGGRAVATED [None]
  - INTERTRIGO [None]
  - RASH ERYTHEMATOUS [None]
  - RASH MACULO-PAPULAR [None]
  - RASH PRURITIC [None]
  - TOXIC SKIN ERUPTION [None]
